FAERS Safety Report 5695751-5 (Version None)
Quarter: 2008Q2

REPORT INFORMATION
  Report Type: 
  Country: None (occurrence: None)
  Receive Date: 20080404
  Receipt Date: 20080404
  Transmission Date: 20081010
  Serious: Yes (Death, Hospitalization)
  Sender: FDA-Public Use
  Company Number: None

PATIENT
  Sex: Male
  Weight: 89.8 kg

DRUGS (7)
  1. CISPLATIN [Suspect]
     Dosage: 198 MG
     Dates: end: 20080325
  2. CRESTOR [Concomitant]
  3. DEXAMETHASONE [Concomitant]
  4. ACETAMINOPHEN AND HYDROCODONE BITARTRATE [Concomitant]
  5. LYRICA [Concomitant]
  6. TYLENOL (CAPLET) [Concomitant]
  7. ZOFRAN [Concomitant]

REACTIONS (2)
  - COMPLETED SUICIDE [None]
  - GUN SHOT WOUND [None]
